FAERS Safety Report 6037640-2 (Version None)
Quarter: 2009Q1

REPORT INFORMATION
  Report Type: 
  Country: None (occurrence: None)
  Receive Date: 20090113
  Receipt Date: 20081217
  Transmission Date: 20090719
  Serious: Yes (Other)
  Sender: FDA-Public Use
  Company Number: 20009-00001

PATIENT
  Sex: Female
  Weight: 54.4316 kg

DRUGS (1)
  1. CLEAN + CLEAR PERSA-GEL, MAXIMUM STRENGTH [Suspect]
     Indication: ACNE
     Dosage: TOPICAL
     Route: 061

REACTIONS (2)
  - APPLICATION SITE SWELLING [None]
  - PHARYNGEAL OEDEMA [None]
